FAERS Safety Report 15290041 (Version 1)
Quarter: 2018Q3

REPORT INFORMATION
  Report Type: Spontaneous
  Country: US (occurrence: US)
  Receive Date: 20180803
  Receipt Date: 20180803
  Transmission Date: 20181010
  Serious: Yes (Life-Threatening)
  Sender: FDA-Public Use
  Company Number: None

PATIENT
  Age: 49 Year
  Sex: Female
  Weight: 92.99 kg

DRUGS (17)
  1. CRONISONE SHOT [Concomitant]
  2. SULFASALAZINE. [Concomitant]
     Active Substance: SULFASALAZINE
  3. CHONDROITIN [Concomitant]
     Active Substance: CHONDROITIN
  4. GALAPINTIA [Concomitant]
  5. DICLOFENAC SOD [Concomitant]
     Active Substance: DICLOFENAC SODIUM
  6. GLUCOSAMINE [Concomitant]
     Active Substance: GLUCOSAMINE
  7. MULTIVITAMIN NATURAL BERRY, PEACH + ORANGE FLAVOR [Concomitant]
  8. REMICADE [Suspect]
     Active Substance: INFLIXIMAB
     Indication: ANKYLOSING SPONDYLITIS
  9. LORATADINE. [Concomitant]
     Active Substance: LORATADINE
  10. DIETARY SUPPLEMENT GLUTEN FREE [Concomitant]
  11. LORATADINE. [Concomitant]
     Active Substance: LORATADINE
  12. ACETAMINOPHEN. [Concomitant]
     Active Substance: ACETAMINOPHEN
  13. FLUTICASONE PROPIONATE. [Concomitant]
     Active Substance: FLUTICASONE PROPIONATE
  14. OLOPUTADINE [Concomitant]
  15. DICLOFENAC SOD [Concomitant]
     Active Substance: DICLOFENAC SODIUM
  16. ADULT GUMMY MULTI  VIT E COMPLETE ADULT [Concomitant]
  17. AMLODIPINE BESYLATE. [Concomitant]
     Active Substance: AMLODIPINE BESYLATE

REACTIONS (8)
  - Arthritis [None]
  - Tendonitis [None]
  - Hypersensitivity [None]
  - Dyspnoea [None]
  - Scoliosis [None]
  - Blood pressure abnormal [None]
  - Vertigo [None]
  - Bursitis [None]
